FAERS Safety Report 7352634-2 (Version None)
Quarter: 2011Q1

REPORT INFORMATION
  Report Type: 
  Country: None (occurrence: None)
  Receive Date: 20110301
  Receipt Date: 20091022
  Transmission Date: 20110831
  Serious: Yes (Other)
  Sender: FDA-Public Use
  Company Number: RB-23198-2009

PATIENT
  Age: 55 Year
  Sex: Male

DRUGS (1)
  1. SUBOXONE [Suspect]
     Indication: DRUG DEPENDENCE
     Dosage: (ONE TIME DOSE SUBLINGUAL)
     Route: 060
     Dates: start: 20080101, end: 20080101

REACTIONS (1)
  - EUPHORIC MOOD [None]
